FAERS Safety Report 10672246 (Version 1)
Quarter: 2014Q4

REPORT INFORMATION
  Report Type: Spontaneous
  Country: US (occurrence: None)
  Receive Date: 20141222
  Receipt Date: 20141222
  Transmission Date: 20150529
  Serious: Yes (Hospitalization, Disabling)
  Sender: FDA-Public Use
  Company Number: None

PATIENT
  Age: 59 Year
  Sex: Male
  Weight: 90.72 kg

DRUGS (2)
  1. FLUTICASONE PROPIONATE 50MCG PER SPRAY [Suspect]
     Active Substance: FLUTICASONE PROPIONATE
     Indication: MULTIPLE ALLERGIES
     Dosage: 1 OR 2 SPRAYS, ONCE DAILY, INHALATION?
     Route: 055
     Dates: start: 20141203, end: 20141211
  2. FLUTICASONE PROPIONATE 50MCG PER SPRAY [Suspect]
     Active Substance: FLUTICASONE PROPIONATE
     Indication: DYSPNOEA
     Dosage: 1 OR 2 SPRAYS, ONCE DAILY, INHALATION?
     Route: 055
     Dates: start: 20141203, end: 20141211

REACTIONS (4)
  - Hypertension [None]
  - Dyspnoea [None]
  - Rash [None]
  - Headache [None]

NARRATIVE: CASE EVENT DATE: 20141213
